FAERS Safety Report 8071781-3 (Version None)
Quarter: 2012Q1

REPORT INFORMATION
  Report Type: 
  Country: None (occurrence: None)
  Receive Date: 20120126
  Receipt Date: 20120119
  Transmission Date: 20120608
  Serious: Yes (Hospitalization)
  Sender: FDA-Public Use
  Company Number: US-BIOGENIDEC-2012BI002501

PATIENT
  Sex: Female

DRUGS (2)
  1. AVONEX [Suspect]
     Indication: MULTIPLE SCLEROSIS
     Route: 030
     Dates: start: 20010530, end: 20070101
  2. AVONEX [Suspect]
     Route: 030
     Dates: start: 20111104

REACTIONS (3)
  - JOINT STIFFNESS [None]
  - INFLUENZA [None]
  - MUSCULOSKELETAL STIFFNESS [None]
